FAERS Safety Report 21896205 (Version 6)
Quarter: 2024Q3

REPORT INFORMATION
  Report Type: Spontaneous
  Country: US (occurrence: US)
  Receive Date: 20230123
  Receipt Date: 20240918
  Transmission Date: 20241017
  Serious: Yes (Hospitalization, Other)
  Sender: TAKEDA
  Company Number: US-TAKEDA-2023TUS006729

PATIENT
  Age: 59 Year
  Sex: Female

DRUGS (1)
  1. ENTYVIO [Suspect]
     Active Substance: VEDOLIZUMAB
     Indication: Crohn^s disease
     Dosage: UNK UNK, Q6WEEKS
     Route: 042
     Dates: start: 201608

REACTIONS (5)
  - Crohn^s disease [Not Recovered/Not Resolved]
  - Large intestinal obstruction [Recovered/Resolved]
  - Post procedural infection [Recovering/Resolving]
  - Laryngitis [Recovering/Resolving]
  - Off label use [Unknown]

NARRATIVE: CASE EVENT DATE: 20230112
